FAERS Safety Report 4875093-8 (Version None)
Quarter: 2006Q1

REPORT INFORMATION
  Report Type: 
  Country: None (occurrence: None)
  Receive Date: 20060109
  Receipt Date: 20060104
  Transmission Date: 20060701
  Serious: Yes (Other)
  Sender: FDA-Public Use
  Company Number: US-GLAXOSMITHKLINE-A0588008A

PATIENT
  Age: 20 Year
  Sex: Female

DRUGS (2)
  1. BUPROPION [Suspect]
     Indication: INTENTIONAL OVERDOSE
     Dosage: 7TAB PER DAY
     Route: 048
     Dates: start: 20051231, end: 20051231
  2. PRENATAL VITAMINS [Concomitant]

REACTIONS (2)
  - DRUG EXPOSURE DURING PREGNANCY [None]
  - INTENTIONAL OVERDOSE [None]
